FAERS Safety Report 4759809-7 (Version None)
Quarter: 2005Q3

REPORT INFORMATION
  Report Type: 
  Country: None (occurrence: None)
  Receive Date: 20050831
  Receipt Date: 20050831
  Transmission Date: 20060218
  Serious: Yes (Death, Hospitalization, Disabling)
  Sender: FDA-Public Use
  Company Number: None

PATIENT
  Age: 67 Year
  Sex: Female
  Weight: 3 kg

DRUGS (9)
  1. NITROFURANTOIN [Suspect]
     Indication: HEPATIC FAILURE
     Dosage: 100 MG QD PO
     Route: 048
  2. NITROFURANTOIN [Suspect]
     Indication: HEPATIC TRAUMA
     Dosage: 100 MG QD PO
     Route: 048
  3. SIMVASTATIN [Concomitant]
  4. CALCIUM CARBONATE [Concomitant]
  5. CILAZAPRIL [Concomitant]
  6. PHENAZOPYRIDINE [Concomitant]
  7. THYROXINE [Concomitant]
  8. VITAMINE D [Concomitant]
  9. FOLIC ACID [Concomitant]

REACTIONS (8)
  - ACTIVATED PARTIAL THROMBOPLASTIN TIME PROLONGED [None]
  - ASCITES [None]
  - DYSPNOEA [None]
  - ENCEPHALOPATHY [None]
  - HEPATIC TRAUMA [None]
  - HEPATITIS TOXIC [None]
  - OEDEMA PERIPHERAL [None]
  - PROTHROMBIN TIME PROLONGED [None]
